FAERS Safety Report 19470957 (Version 1)
Quarter: 2021Q2

REPORT INFORMATION
  Report Type: Spontaneous
  Country: US (occurrence: US)
  Receive Date: 20210629
  Receipt Date: 20210629
  Transmission Date: 20210717
  Serious: No
  Sender: FDA-Public Use
  Company Number: US-ALLERGAN-2116228US

PATIENT
  Sex: Female

DRUGS (3)
  1. DURYSTA [Suspect]
     Active Substance: BIMATOPROST
     Indication: PRODUCT USED FOR UNKNOWN INDICATION
     Dosage: 10 ?G, SINGLE
  2. PFIZER?BIONTECH COVID?19 VACCINE [Suspect]
     Active Substance: TOZINAMERAN
     Indication: COVID-19 IMMUNISATION
     Dosage: UNK, SINGLE
  3. DUREZOL [Suspect]
     Active Substance: DIFLUPREDNATE
     Indication: IRITIS

REACTIONS (2)
  - Intraocular pressure increased [Unknown]
  - Iritis [Not Recovered/Not Resolved]
